FAERS Safety Report 5920065-5 (Version None)
Quarter: 2008Q4

REPORT INFORMATION
  Report Type: 
  Country: None (occurrence: None)
  Receive Date: 20081014
  Receipt Date: 20080927
  Transmission Date: 20090506
  Serious: Yes (Other)
  Sender: FDA-Public Use
  Company Number: PIR #0810004

PATIENT
  Age: 51 Year
  Sex: Female

DRUGS (1)
  1. METRONIDAZOLE [Suspect]

REACTIONS (10)
  - ANAPHYLACTIC REACTION [None]
  - ANGIOEDEMA [None]
  - GENERALISED ERYTHEMA [None]
  - LIP OEDEMA [None]
  - PARAESTHESIA ORAL [None]
  - PRURITUS [None]
  - RHINORRHOEA [None]
  - SIMILAR REACTION ON PREVIOUS EXPOSURE TO DRUG [None]
  - SKIN LESION [None]
  - SNEEZING [None]
